FAERS Safety Report 6517576-0 (Version None)
Quarter: 2009Q4

REPORT INFORMATION
  Report Type: 
  Country: None (occurrence: None)
  Receive Date: 20091224
  Receipt Date: 20091214
  Transmission Date: 20100525
  Serious: Yes (Other)
  Sender: FDA-Public Use
  Company Number: PHHY2009CA55806

PATIENT
  Sex: Male
  Weight: 145.13 kg

DRUGS (2)
  1. DIOVAN [Suspect]
     Dosage: 1 TABLET (160 MG) QD
     Route: 048
  2. DIOVAN [Suspect]
     Dosage: 320 MG, QD
     Route: 048

REACTIONS (2)
  - CHEST PAIN [None]
  - HYPERTENSION [None]
